FAERS Safety Report 10951047 (Version 1)
Quarter: 2015Q1

REPORT INFORMATION
  Report Type: Spontaneous
  Country: US (occurrence: None)
  Receive Date: 20150226
  Receipt Date: 20150226
  Transmission Date: 20150721
  Serious: No
  Sender: FDA-Public Use
  Company Number: TPA2005Q00637

PATIENT
  Age: 77 Year
  Sex: Male
  Weight: 76.66 kg

DRUGS (4)
  1. BETA BLOCKER (BETA BLOCKING AGENTS) [Concomitant]
     Active Substance: UNSPECIFIED INGREDIENT
     Route: 048
  2. ASPIRIN (ACETYLSALICYLIC ACID) [Concomitant]
     Active Substance: ASPIRIN
     Route: 048
  3. PLAVIX [Concomitant]
     Active Substance: CLOPIDOGREL BISULFATE
     Route: 048
  4. PREVACID [Suspect]
     Active Substance: LANSOPRAZOLE
     Indication: GASTROOESOPHAGEAL REFLUX DISEASE
     Route: 048
     Dates: start: 2004

REACTIONS (3)
  - Angina pectoris [None]
  - Weight decreased [None]
  - Coronary artery occlusion [None]

NARRATIVE: CASE EVENT DATE: 2004
